FAERS Safety Report 11659359 (Version 1)
Quarter: 2015Q4

REPORT INFORMATION
  Report Type: Other
  Country: US (occurrence: US)
  Receive Date: 20151026
  Receipt Date: 20151026
  Transmission Date: 20160304
  Serious: Yes (Other)
  Sender: FDA-Public Use
  Company Number: US-SHIRE-US201512828

PATIENT
  Age: 15 Year
  Sex: Female

DRUGS (3)
  1. CINRYZE [Suspect]
     Active Substance: HUMAN C1-ESTERASE INHIBITOR
     Indication: PROPHYLAXIS
  2. CINRYZE [Suspect]
     Active Substance: HUMAN C1-ESTERASE INHIBITOR
     Indication: HEREDITARY ANGIOEDEMA
     Dosage: 1000 UNITS, OTHER (EVERY 3-5 DAYS)
     Route: 042
     Dates: start: 20150512
  3. FIRAZYR [Suspect]
     Active Substance: ICATIBANT ACETATE
     Indication: PHARYNGEAL OEDEMA
     Dosage: 30 MG, AS REQ^D
     Route: 058
     Dates: start: 20151012, end: 20151012

REACTIONS (3)
  - Drug administered to patient of inappropriate age [Unknown]
  - Pharyngeal oedema [Unknown]
  - Inappropriate schedule of drug administration [Not Recovered/Not Resolved]

NARRATIVE: CASE EVENT DATE: 20150512
